FAERS Safety Report 6470279-3 (Version None)
Quarter: 2009Q4

REPORT INFORMATION
  Report Type: 
  Country: None (occurrence: None)
  Receive Date: 20091201
  Receipt Date: 20091116
  Transmission Date: 20100525
  Serious: Yes (Other)
  Sender: FDA-Public Use
  Company Number: 2009AL007400

PATIENT
  Age: 56 Year
  Sex: Male

DRUGS (3)
  1. ACETAMINOPHEN AND CODEINE PHOSPHATE [Suspect]
     Dosage: 1 DF; PO
     Route: 048
     Dates: start: 20060710, end: 20060710
  2. ALBUTEROL [Concomitant]
  3. IBUPROFEN [Concomitant]

REACTIONS (2)
  - DYSPNOEA [None]
  - SWELLING FACE [None]
